FAERS Safety Report 10275795 (Version 2)
Quarter: 2014Q3

REPORT INFORMATION
  Report Type: Report from Study
  Country: US (occurrence: US)
  Receive Date: 20140703
  Receipt Date: 20140703
  Transmission Date: 20150326
  Serious: Yes (Hospitalization, Other)
  Sender: FDA-Public Use
  Company Number: PHEH2012US019992

PATIENT
  Age: 11 Year
  Sex: Female

DRUGS (7)
  1. AFINITOR [Suspect]
     Active Substance: EVEROLIMUS
     Indication: ASTROCYTOMA, LOW GRADE
     Dosage: 5 MG, DAILY
     Route: 048
     Dates: start: 20121029
  2. DEPAKOTE [Concomitant]
     Active Substance: DIVALPROEX SODIUM
     Dosage: 5 DF, WAS 5 QAM AND 5 QPM; AND UPPED TO 6 QAM AND 6 QPM
  3. LISINOPRIL. [Concomitant]
     Active Substance: LISINOPRIL
  4. METFORMIN [Concomitant]
     Active Substance: METFORMIN HYDROCHLORIDE
  5. AFINITOR [Suspect]
     Active Substance: EVEROLIMUS
     Dosage: 5 MG, QOD
     Route: 048
     Dates: end: 20140415
  6. ABILIFY [Concomitant]
     Active Substance: ARIPIPRAZOLE
  7. CLONIDINE. [Concomitant]
     Active Substance: CLONIDINE

REACTIONS (10)
  - Increased appetite [Unknown]
  - Renal cyst ruptured [Unknown]
  - Renal cyst haemorrhage [Unknown]
  - Stomatitis [Recovered/Resolved]
  - Weight increased [Unknown]
  - Convulsion [Unknown]
  - Rash generalised [Recovered/Resolved]
  - Urticaria [Unknown]
  - Nasopharyngitis [Unknown]
  - Pertussis [Unknown]

NARRATIVE: CASE EVENT DATE: 20121029
